FAERS Safety Report 4893713-9 (Version None)
Quarter: 2006Q1

REPORT INFORMATION
  Report Type: 
  Country: None (occurrence: None)
  Receive Date: 20060127
  Receipt Date: 20060120
  Transmission Date: 20060701
  Serious: Yes (Congenital Anomaly)
  Sender: FDA-Public Use
  Company Number: US-GLAXOSMITHKLINE-A0591135B

PATIENT

DRUGS (1)
  1. LAMICTAL [Suspect]
     Indication: EPILEPSY
     Dosage: 200MG UNKNOWN

REACTIONS (2)
  - DRUG EXPOSURE DURING PREGNANCY [None]
  - HOLOPROSENCEPHALY [None]
